FAERS Safety Report 12652822 (Version 1)
Quarter: 2016Q3

REPORT INFORMATION
  Report Type: Spontaneous
  Country: US (occurrence: US)
  Receive Date: 20160815
  Receipt Date: 20160815
  Transmission Date: 20161109
  Serious: Yes (Other)
  Sender: FDA-Public Use
  Company Number: US-NOVOPROD-504785

PATIENT
  Age: 73 Year
  Sex: Female
  Weight: 48.98 kg

DRUGS (1)
  1. VICTOZA [Suspect]
     Active Substance: LIRAGLUTIDE
     Indication: TYPE 2 DIABETES MELLITUS
     Dosage: 0.6 MG, QD
     Route: 058
     Dates: start: 20160719, end: 20160723

REACTIONS (5)
  - Urinary tract infection [Recovering/Resolving]
  - Constipation [Recovered/Resolved]
  - Dehydration [Recovering/Resolving]
  - Cystitis [Recovering/Resolving]
  - Kidney infection [Recovering/Resolving]

NARRATIVE: CASE EVENT DATE: 20160719
